FAERS Safety Report 9337195 (Version 1)
Quarter: 2013Q2

REPORT INFORMATION
  Report Type: Spontaneous
  Country: US (occurrence: US)
  Receive Date: 20130607
  Receipt Date: 20130607
  Transmission Date: 20140414
  Serious: Yes (Other)
  Sender: FDA-Public Use
  Company Number: US-BAYER-2013-068296

PATIENT
  Age: 20 Year
  Sex: Female

DRUGS (2)
  1. GADAVIST [Suspect]
     Indication: NUCLEAR MAGNETIC RESONANCE IMAGING BRAIN
     Dosage: 5.5 ML, UNK
     Dates: start: 20130601, end: 20130601
  2. GADAVIST [Suspect]
     Indication: CONVULSION

REACTIONS (5)
  - Dyspnoea [None]
  - Nausea [None]
  - Abdominal pain [None]
  - Back pain [None]
  - Sinus disorder [None]
